FAERS Safety Report 16373070 (Version 1)
Quarter: 2019Q2

REPORT INFORMATION
  Report Type: Spontaneous
  Country: US (occurrence: US)
  Receive Date: 20190530
  Receipt Date: 20190530
  Transmission Date: 20190711
  Serious: Yes (Other)
  Sender: FDA-Public Use
  Company Number: US-PFIZER INC-2019225492

PATIENT
  Age: 68 Year
  Sex: Male
  Weight: 79.38 kg

DRUGS (16)
  1. ZETIA [Concomitant]
     Active Substance: EZETIMIBE
     Dosage: 10 MG, UNK (ONE BY MOUTH)
     Route: 048
  2. BABY ASPIRIN [Concomitant]
     Active Substance: ASPIRIN
     Dosage: UNK
  3. FENOFIBRATE. [Concomitant]
     Active Substance: FENOFIBRATE
     Dosage: 160 MG, UNK
  4. METOPROLOL SUCCINATE. [Concomitant]
     Active Substance: METOPROLOL SUCCINATE
     Dosage: 50 MG, DAILY
  5. LYRICA [Suspect]
     Active Substance: PREGABALIN
     Indication: NEUROPATHY PERIPHERAL
     Dosage: 300 MG, UNK (300 ONCE A DAY SOMETIMES TWICE A DAY)
  6. LYRICA [Suspect]
     Active Substance: PREGABALIN
     Dosage: 150 MG, UNK
  7. ZYRTEC [Concomitant]
     Active Substance: CETIRIZINE HYDROCHLORIDE
     Dosage: UNK
     Route: 048
  8. OXYCODONE [Concomitant]
     Active Substance: OXYCODONE
     Dosage: 5 MG, UNK
  9. BROMDAY [Concomitant]
     Active Substance: BROMFENAC SODIUM
     Dosage: UNK, 1X/DAY
  10. CELEBREX [Concomitant]
     Active Substance: CELECOXIB
  11. LYRICA [Suspect]
     Active Substance: PREGABALIN
     Dosage: 100 MG, UNK (100 ONCE A DAY SOMETIMES TWICE A DAY )
  12. AMBIEN [Concomitant]
     Active Substance: ZOLPIDEM TARTRATE
     Dosage: 10 MG, 1X/DAY (AT NIGHT)
  13. PROPRANOLOL [Concomitant]
     Active Substance: PROPRANOLOL HYDROCHLORIDE
     Indication: TREMOR
     Dosage: UNK
  14. SIMVADOR [Concomitant]
     Active Substance: SIMVASTATIN
     Indication: BLOOD CHOLESTEROL
     Dosage: UNK
  15. FLUTICASONE PROPIONATE. [Concomitant]
     Active Substance: FLUTICASONE PROPIONATE
     Indication: HYPERSENSITIVITY
     Dosage: UNK
     Route: 055
  16. PRIMIDONE. [Concomitant]
     Active Substance: PRIMIDONE
     Dosage: 2 DF, 4X/DAY (2 BY MOUTH, 4 TIMES A DAY)
     Route: 048

REACTIONS (8)
  - Renal disorder [Unknown]
  - Off label use [Unknown]
  - Drug dependence [Unknown]
  - Blood creatine increased [Unknown]
  - Body height decreased [Unknown]
  - Expired product administered [Unknown]
  - Product use in unapproved indication [Unknown]
  - Intentional product misuse [Unknown]
